FAERS Safety Report 9253754 (Version 2)
Quarter: 2013Q2

REPORT INFORMATION
  Report Type: Spontaneous
  Country: US (occurrence: None)
  Receive Date: 20130419
  Receipt Date: 20130617
  Transmission Date: 20140414
  Serious: Yes (Hospitalization)
  Sender: FDA-Public Use
  Company Number: ACO_35497_2013

PATIENT
  Age: 60 Year
  Sex: Male

DRUGS (6)
  1. AMPYRA (DALFAMPRIDINE) TABLET, 10MG [Suspect]
     Indication: PRODUCT USED FOR UNKNOWN INDICATION
     Dates: start: 20121112
  2. BACLOFEN (BACLOFEN) [Concomitant]
  3. LYRICA 9PREGABALIN) [Concomitant]
  4. COPAXONE (GLATIRAMER ACETATE) [Concomitant]
  5. PROVIGIL (MODAFINIL) [Concomitant]
  6. GRAPE SEED EXTRACT (VITIS VINIFERA SEED) [Concomitant]

REACTIONS (2)
  - Transient ischaemic attack [None]
  - Hemiparesis [None]
